FAERS Safety Report 7031964-8 (Version None)
Quarter: 2010Q4

REPORT INFORMATION
  Report Type: 
  Country: None (occurrence: None)
  Receive Date: 20101007
  Receipt Date: 20100924
  Transmission Date: 20110411
  Serious: Yes (Hospitalization, Other)
  Sender: FDA-Public Use
  Company Number: GB-ELI_LILLY_AND_COMPANY-GB201009006977

PATIENT
  Age: 21 Year
  Sex: Male

DRUGS (2)
  1. ZYPREXA [Suspect]
     Dosage: 10 MG, UNKNOWN
     Route: 065
  2. ESCITALOPRAM [Concomitant]
     Dosage: 20 MG, UNKNOWN
     Route: 065

REACTIONS (5)
  - AGITATION [None]
  - COMA SCALE ABNORMAL [None]
  - HYPERTENSION [None]
  - OBSTRUCTIVE AIRWAYS DISORDER [None]
  - OVERDOSE [None]
